FAERS Safety Report 13586518 (Version 1)
Quarter: 2017Q2

REPORT INFORMATION
  Report Type: Spontaneous
  Country: US (occurrence: US)
  Receive Date: 20170525
  Receipt Date: 20170525
  Transmission Date: 20170830
  Serious: No
  Sender: FDA-Public Use
  Company Number: None

PATIENT
  Age: 54 Year
  Sex: Female

DRUGS (1)
  1. HUMIRA [Suspect]
     Active Substance: ADALIMUMAB
     Indication: RHEUMATOID ARTHRITIS
     Dosage: EVERY OTHER WEEK
     Route: 058
     Dates: start: 20170522

REACTIONS (4)
  - Fatigue [None]
  - Nausea [None]
  - Vertigo [None]
  - Migraine [None]

NARRATIVE: CASE EVENT DATE: 20170523
